FAERS Safety Report 4557122-4 (Version None)
Quarter: 2005Q1

REPORT INFORMATION
  Report Type: 
  Country: None (occurrence: None)
  Receive Date: 20050119
  Receipt Date: 20050119
  Transmission Date: 20050727
  Serious: Yes (Disabling)
  Sender: FDA-Public Use
  Company Number: None

PATIENT
  Age: 32 Year
  Sex: Female
  Weight: 62.1428 kg

DRUGS (1)
  1. EFFEXOR [Suspect]
     Dosage: DAILY

REACTIONS (14)
  - APATHY [None]
  - CONFUSIONAL STATE [None]
  - CRYING [None]
  - FEAR [None]
  - FEELING ABNORMAL [None]
  - FEELING OF DESPAIR [None]
  - HEADACHE [None]
  - IMPAIRED WORK ABILITY [None]
  - INSOMNIA [None]
  - MEMORY IMPAIRMENT [None]
  - MENTAL DISORDER [None]
  - PARANOIA [None]
  - RASH [None]
  - WEIGHT DECREASED [None]
